FAERS Safety Report 10192956 (Version 1)
Quarter: 2014Q2

REPORT INFORMATION
  Report Type: Spontaneous
  Country: US (occurrence: US)
  Receive Date: 20140523
  Receipt Date: 20140523
  Transmission Date: 20141212
  Serious: Yes (Other)
  Sender: FDA-Public Use
  Company Number: US-ABBVIE-14P-163-1238487-00

PATIENT
  Age: 38 Year
  Sex: Female
  Weight: 104.42 kg

DRUGS (5)
  1. HUMIRA [Suspect]
     Indication: PSORIATIC ARTHROPATHY
     Route: 058
     Dates: start: 20130609
  2. HUMIRA [Suspect]
     Indication: PSORIASIS
  3. COMPOUND SALICYLIC ACID 5%/LCD 3%/TMC 0.1% [Concomitant]
     Indication: PRODUCT USED FOR UNKNOWN INDICATION
  4. T GEL/NIZORAL SHAMPOO [Concomitant]
     Indication: PRODUCT USED FOR UNKNOWN INDICATION
  5. FOLIC ACID [Concomitant]
     Indication: PRODUCT USED FOR UNKNOWN INDICATION
     Dosage: 1 MILLIGRAM PER DAY ON DAYS WITH OUT METHOTREXATE
     Dates: start: 20140131

REACTIONS (13)
  - Scab [Unknown]
  - Drug ineffective [Unknown]
  - Weight increased [Not Recovered/Not Resolved]
  - Stress [Not Recovered/Not Resolved]
  - Eczema nummular [Not Recovered/Not Resolved]
  - Eczema nummular [Not Recovered/Not Resolved]
  - Skin plaque [Not Recovered/Not Resolved]
  - Therapy responder [Unknown]
  - Drug specific antibody present [Not Recovered/Not Resolved]
  - Skin lesion [Unknown]
  - Melanocytic naevus [Unknown]
  - Seborrhoeic keratosis [Unknown]
  - Melanocytic naevus [Not Recovered/Not Resolved]
